FAERS Safety Report 9782137 (Version 2)
Quarter: 2013Q4

REPORT INFORMATION
  Report Type: Spontaneous
  Country: US (occurrence: US)
  Receive Date: 20131226
  Receipt Date: 20131226
  Transmission Date: 20140711
  Serious: Yes (Hospitalization, Other)
  Sender: FDA-Public Use
  Company Number: US-BAXTER-2013BAX047102

PATIENT
  Sex: Male

DRUGS (3)
  1. DIANEAL LOW CALCIUM [Suspect]
     Indication: PERITONEAL DIALYSIS
     Route: 033
     Dates: start: 201310
  2. DIANEAL LOW CALCIUM [Suspect]
     Indication: PERITONEAL DIALYSIS
     Route: 033
     Dates: start: 201310
  3. DIANEAL LOW CALCIUM [Suspect]
     Indication: PERITONEAL DIALYSIS
     Route: 033
     Dates: start: 201310

REACTIONS (10)
  - Renal failure [Not Recovered/Not Resolved]
  - Disease complication [Not Recovered/Not Resolved]
  - Syncope [Not Recovered/Not Resolved]
  - Gastrointestinal infection [Unknown]
  - Haematochezia [Unknown]
  - Hypophagia [Unknown]
  - Blood pressure fluctuation [Recovering/Resolving]
  - Peritonitis [Recovering/Resolving]
  - Ultrafiltration failure [Not Recovered/Not Resolved]
  - Fluid overload [Not Recovered/Not Resolved]
